FAERS Safety Report 20953733 (Version 2)
Quarter: 2022Q3

REPORT INFORMATION
  Report Type: Report from Study
  Country: US (occurrence: US)
  Receive Date: 20220613
  Receipt Date: 20220719
  Transmission Date: 20221027
  Serious: Yes (Other)
  Sender: FDA-Public Use
  Company Number: US-ABBVIE-22K-163-4431323-00

PATIENT
  Age: 75 Year
  Sex: Female

DRUGS (1)
  1. VENCLEXTA [Suspect]
     Active Substance: VENETOCLAX
     Indication: Chronic lymphocytic leukaemia
     Dosage: BY MOUTH DAILY WITH A MEAL AND WATER AT APPROXIMATELY THE SAME TIME EACH DAY
     Route: 048

REACTIONS (2)
  - Tooth abscess [Unknown]
  - Fungal infection [Unknown]

NARRATIVE: CASE EVENT DATE: 20220601
